FAERS Safety Report 11243875 (Version 4)
Quarter: 2015Q3

REPORT INFORMATION
  Report Type: Spontaneous
  Country: BR (occurrence: BR)
  Receive Date: 20150707
  Receipt Date: 20150917
  Transmission Date: 20151125
  Serious: Yes (Death, Hospitalization, Other)
  Sender: FDA-Public Use
  Company Number: BR-PFIZER INC-2015222373

PATIENT
  Age: 59 Year
  Sex: Female

DRUGS (1)
  1. SUTENT [Suspect]
     Active Substance: SUNITINIB MALATE
     Indication: METASTATIC RENAL CELL CARCINOMA
     Dosage: 50 MG, (1 CAPSULE) DAILY, CYCLE 4 X 2
     Route: 048
     Dates: start: 20150410, end: 2015

REACTIONS (8)
  - Seizure [Unknown]
  - Fall [Unknown]
  - Head injury [Unknown]
  - Cerebrovascular accident [Unknown]
  - Metastatic renal cell carcinoma [Fatal]
  - Pain [Unknown]
  - Dizziness [Unknown]
  - Disease progression [Fatal]

NARRATIVE: CASE EVENT DATE: 2015
